FAERS Safety Report 8313028-6 (Version None)
Quarter: 2012Q2

REPORT INFORMATION
  Report Type: 
  Country: None (occurrence: None)
  Receive Date: 20120424
  Receipt Date: 20120417
  Transmission Date: 20120825
  Serious: Yes (Congenital Anomaly, Other)
  Sender: FDA-Public Use
  Company Number: GER/GER/12/0023974

PATIENT
  Sex: Female
  Weight: 3.43 kg

DRUGS (1)
  1. LAMOTRIGINE [Suspect]
     Indication: PRODUCT USED FOR UNKNOWN INDICATION
     Dosage: 200 MG, 1 IN 1 D, TRANSPLACENTAL
     Route: 064
     Dates: start: 20090813, end: 20100509

REACTIONS (4)
  - CONGENITAL ANOMALY [None]
  - BICUSPID AORTIC VALVE [None]
  - ATRIAL SEPTAL DEFECT [None]
  - MATERNAL DRUGS AFFECTING FOETUS [None]
